FAERS Safety Report 8801054 (Version 1)
Quarter: 2012Q4

REPORT INFORMATION
  Report Type: 
  Country: VE (occurrence: VE)
  Receive Date: 20120920
  Receipt Date: 20120920
  Transmission Date: 20130627
  Serious: Yes (Hospitalization)
  Sender: FDA-Public Use
  Company Number: VE-ROCHE-1132494

PATIENT
  Sex: Female

DRUGS (3)
  1. XOLAIR [Suspect]
     Indication: BLOOD IMMUNOGLOBULIN E INCREASED
     Route: 065
     Dates: start: 201202, end: 201204
  2. NASONEX [Concomitant]
     Route: 065
     Dates: start: 2002
  3. SODIUM CHLORIDE [Concomitant]
     Route: 065
     Dates: start: 201204

REACTIONS (1)
  - Nasal polyps [Recovering/Resolving]
